FAERS Safety Report 7351110-0 (Version None)
Quarter: 2011Q1

REPORT INFORMATION
  Report Type: 
  Country: None (occurrence: None)
  Receive Date: 20110314
  Receipt Date: 20110309
  Transmission Date: 20110831
  Serious: Yes (Other)
  Sender: FDA-Public Use
  Company Number: GB-TEVA-270404ISR

PATIENT
  Age: 72 Year
  Sex: Female
  Weight: 86.3 kg

DRUGS (1)
  1. TRAMADOL [Suspect]

REACTIONS (1)
  - AGEUSIA [None]
